FAERS Safety Report 20739680 (Version 1)
Quarter: 2022Q2

REPORT INFORMATION
  Report Type: Spontaneous
  Country: US (occurrence: US)
  Receive Date: 20220422
  Receipt Date: 20220422
  Transmission Date: 20220721
  Serious: Yes (Hospitalization, Other)
  Sender: FDA-Public Use
  Company Number: US-PBT-004521

PATIENT
  Age: 28 Year
  Sex: Male

DRUGS (4)
  1. TACROLIMUS [Suspect]
     Active Substance: TACROLIMUS
     Indication: Autoimmune enteropathy
     Route: 065
  2. PREDNISONE [Suspect]
     Active Substance: PREDNISONE
     Indication: Aplastic anaemia
     Route: 065
  3. THYMOCYTE IMMUNE GLOBULIN NOS [Suspect]
     Active Substance: THYMOCYTE IMMUNE GLOBULIN NOS
     Indication: Aplastic anaemia
     Route: 065
  4. CYCLOSPORINE [Suspect]
     Active Substance: CYCLOSPORINE
     Indication: Aplastic anaemia
     Route: 065

REACTIONS (8)
  - Pancytopenia [Unknown]
  - Autoimmune enteropathy [Unknown]
  - Disease recurrence [Unknown]
  - Product use in unapproved indication [Unknown]
  - ZRSR2 gene mutation [Unknown]
  - Aplastic anaemia [Unknown]
  - Colon cancer [Recovered/Resolved]
  - Nephropathy [Unknown]
